FAERS Safety Report 6538283-4 (Version None)
Quarter: 2010Q1

REPORT INFORMATION
  Report Type: 
  Country: None (occurrence: None)
  Receive Date: 20100112
  Receipt Date: 20100112
  Transmission Date: 20100710
  Serious: Yes (Hospitalization, Other)
  Sender: FDA-Public Use
  Company Number: None

PATIENT
  Age: 28 Year
  Sex: Female
  Weight: 72.5755 kg

DRUGS (1)
  1. TRINESSA VARY THROUGH MONTH WATSON [Suspect]
     Dosage: VARY THROUGH MONTH ONE A DAY
     Dates: start: 20060306, end: 20071207

REACTIONS (8)
  - ABDOMINAL PAIN UPPER [None]
  - CHOLELITHIASIS [None]
  - HEPATIC MASS [None]
  - HEPATIC STEATOSIS [None]
  - LIVER INJURY [None]
  - LOSS OF CONSCIOUSNESS [None]
  - RED BLOOD CELLS URINE POSITIVE [None]
  - WHITE BLOOD CELLS URINE POSITIVE [None]
